FAERS Safety Report 4794286-1 (Version None)
Quarter: 2005Q4

REPORT INFORMATION
  Report Type: 
  Country: None (occurrence: None)
  Receive Date: 20051011
  Receipt Date: 20050929
  Transmission Date: 20060501
  Serious: Yes (Disabling)
  Sender: FDA-Public Use
  Company Number: FR-GLAXOSMITHKLINE-B0396638A

PATIENT
  Age: 67 Year
  Sex: Male
  Weight: 62 kg

DRUGS (14)
  1. ALKERAN [Suspect]
     Indication: MULTIPLE MYELOMA
     Dosage: 340MG PER DAY
     Route: 042
     Dates: start: 20050608, end: 20050608
  2. NEUPOGEN [Suspect]
     Dosage: 30MCG PER DAY
     Route: 042
     Dates: start: 20050617, end: 20050623
  3. VFEND [Suspect]
     Indication: PROPHYLACTIC CHEMOTHERAPY
     Route: 042
     Dates: start: 20050620, end: 20050624
  4. VFEND [Suspect]
     Dosage: 400MG PER DAY
     Route: 048
     Dates: start: 20050625, end: 20050708
  5. VELCADE [Suspect]
     Indication: MULTIPLE MYELOMA
     Dosage: 8.84MG PER DAY
     Route: 042
     Dates: start: 20050604, end: 20050614
  6. ORAL BOWEL DECONTAMINATION SOLUTION [Concomitant]
     Route: 048
  7. FLUCONAZOLE [Concomitant]
     Route: 048
  8. AMPHOTERICIN B [Concomitant]
     Route: 048
  9. VANCOMYCIN [Concomitant]
     Route: 042
  10. ACYCLOVIR [Concomitant]
     Route: 042
  11. HEPARIN [Concomitant]
     Route: 042
  12. RANITIDINE [Concomitant]
  13. OMEPRAZOLE [Concomitant]
  14. GELOX [Concomitant]

REACTIONS (14)
  - ACUTE PULMONARY OEDEMA [None]
  - APLASIA [None]
  - ATRIAL FIBRILLATION [None]
  - BONE MARROW FAILURE [None]
  - CARDIAC FAILURE [None]
  - DIARRHOEA [None]
  - DYSPNOEA [None]
  - FLUID RETENTION [None]
  - PULMONARY OEDEMA [None]
  - PYREXIA [None]
  - RALES [None]
  - TACHYCARDIA [None]
  - VENTRICULAR EXTRASYSTOLES [None]
  - WEIGHT INCREASED [None]
